FAERS Safety Report 9782975 (Version 1)
Quarter: 2013Q4

REPORT INFORMATION
  Report Type: Spontaneous
  Country: HU (occurrence: HU)
  Receive Date: 20131226
  Receipt Date: 20131226
  Transmission Date: 20140711
  Serious: Yes (Hospitalization, Other)
  Sender: FDA-Public Use
  Company Number: HU-PFIZER INC-2013365919

PATIENT
  Age: 62 Year
  Sex: Female

DRUGS (4)
  1. ATORVASTATIN CALCIUM [Suspect]
     Indication: HYPERCHOLESTEROLAEMIA
  2. MEDROL [Concomitant]
     Dosage: 4 MG, UNK
  3. PANTOPRAZOLE [Concomitant]
  4. AMLODIPINE [Concomitant]

REACTIONS (1)
  - Immune-mediated necrotising myopathy [Recovered/Resolved]
